FAERS Safety Report 5152461-0 (Version None)
Quarter: 2006Q4

REPORT INFORMATION
  Report Type: 
  Country: None (occurrence: None)
  Receive Date: 20061109
  Receipt Date: 20061026
  Transmission Date: 20070319
  Serious: Yes (Congenital Anomaly)
  Sender: FDA-Public Use
  Company Number: PAR_1014_2006

PATIENT

DRUGS (26)
  1. IBUPROFEN [Suspect]
     Dosage: DF
  2. NABUMETONE [Suspect]
     Dosage: DF
  3. MELOXICAM [Suspect]
     Dosage: DF
  4. NAPROXEN [Suspect]
     Dosage: DF
  5. ROFECOXIB [Suspect]
     Dosage: DF
  6. DICLOFENAC SODIUM [Suspect]
     Dosage: DF
  7. CELECOXIB [Suspect]
     Dosage: DF
  8. FLURBIPROFEN [Suspect]
     Dosage: DF
  9. ETODOLAC [Suspect]
     Dosage: DF
  10. KETOPROFEN [Suspect]
     Dosage: DF
  11. PIROXICAM [Suspect]
     Dosage: DF
  12. DIFLUNISAL [Suspect]
     Dosage: DF
  13. TIAPROFENIC ACID [Suspect]
     Dosage: DF
  14. SULINDAC [Suspect]
     Dosage: DF
  15. ACETAMINOPHEN PRODUCTS [Concomitant]
  16. ANTACID TAB [Concomitant]
  17. ANTIEMETICS [Concomitant]
  18. CORTICOSTEROIDS [Concomitant]
  19. DIAGNOSTIC REAGENTS FOR DIABETES [Concomitant]
  20. IRON SUPPLEMENTS [Concomitant]
  21. MACROLIDE ANTIBIOTICS [Concomitant]
  22. ORAL CONTRACEPTIVES [Concomitant]
  23. PENICILLIN [Concomitant]
  24. BETA-AGONISTS [Concomitant]
  25. TOPICAL ANTIFUNGALS [Concomitant]
  26. TOPICAL STEROIDS [Concomitant]

REACTIONS (19)
  - CARDIAC SEPTAL DEFECT [None]
  - CHROMOSOME ABNORMALITY [None]
  - CLEFT LIP AND PALATE [None]
  - CONGENITAL ANOMALY [None]
  - CONGENITAL CENTRAL NERVOUS SYSTEM ANOMALY [None]
  - CONGENITAL EYE DISORDER [None]
  - CONGENITAL GENITAL MALFORMATION [None]
  - CONGENITAL MUSCULOSKELETAL ANOMALY [None]
  - DRUG EXPOSURE DURING PREGNANCY [None]
  - DYSMORPHISM [None]
  - EAR MALFORMATION [None]
  - GASTROINTESTINAL MALFORMATION [None]
  - HEART DISEASE CONGENITAL [None]
  - LIMB MALFORMATION [None]
  - MUSCULOSKELETAL DEFORMITY [None]
  - RESPIRATORY TRACT MALFORMATION [None]
  - SPINA BIFIDA [None]
  - URINARY TRACT MALFORMATION [None]
  - VASCULAR ANOMALY [None]
